FAERS Safety Report 6475835-4 (Version None)
Quarter: 2009Q4

REPORT INFORMATION
  Report Type: 
  Country: None (occurrence: None)
  Receive Date: 20091204
  Receipt Date: 20091124
  Transmission Date: 20100525
  Serious: Yes (Other)
  Sender: FDA-Public Use
  Company Number: ES-PFIZER INC-2009284674

PATIENT
  Age: 9 Year
  Sex: Female
  Weight: 38 kg

DRUGS (3)
  1. SOMATROPIN [Suspect]
     Dosage: 1.4 MG, 1X/DAY
     Route: 058
     Dates: start: 20080424, end: 20090331
  2. CALCIUM ACETATE [Concomitant]
     Indication: HYPERKALAEMIA
     Dosage: 1 G, 1X/DAY
     Route: 048
     Dates: start: 20080205
  3. SODIUM BICARBONATE [Concomitant]
     Dosage: 24 MEQ, 1X/DAY
     Route: 048
     Dates: start: 19990701

REACTIONS (1)
  - OSTEOCHONDROSIS [None]
